FAERS Safety Report 13773317 (Version 3)
Quarter: 2017Q3

REPORT INFORMATION
  Report Type: Spontaneous
  Country: US (occurrence: US)
  Receive Date: 20170720
  Receipt Date: 20170907
  Transmission Date: 20171127
  Serious: No
  Sender: FDA-Public Use
  Company Number: US-PFIZER INC-2017310262

PATIENT
  Age: 13 Year
  Sex: Male
  Weight: 33 kg

DRUGS (2)
  1. GENOTROPIN [Suspect]
     Active Substance: SOMATROPIN
     Indication: FAILURE TO THRIVE
     Dosage: UNK
  2. GENOTROPIN [Suspect]
     Active Substance: SOMATROPIN
     Indication: BODY HEIGHT BELOW NORMAL
     Dosage: 1.6 MG, DAILY
     Route: 058
     Dates: start: 201706

REACTIONS (6)
  - Injection site haemorrhage [Unknown]
  - Device difficult to use [None]
  - Drug dose omission [Unknown]
  - Product preparation error [None]
  - Device issue [Unknown]
  - Device leakage [None]
